FAERS Safety Report 6104141-2 (Version None)
Quarter: 2009Q1

REPORT INFORMATION
  Report Type: 
  Country: None (occurrence: None)
  Receive Date: 20090305
  Receipt Date: 20090225
  Transmission Date: 20090719
  Serious: Yes (Other)
  Sender: FDA-Public Use
  Company Number: GB-ELI_LILLY_AND_COMPANY-GB200811004716

PATIENT
  Age: 15 Year
  Sex: Male

DRUGS (3)
  1. PROZAC [Suspect]
     Indication: DEPRESSION
     Dosage: 20 MG, OTHER
     Route: 048
     Dates: start: 20071116, end: 20080201
  2. CANNABIS [Concomitant]
  3. CITALOPRAM [Concomitant]
     Indication: DEPRESSION
     Dosage: 10 MG, DAILY (1/D)
     Route: 048
     Dates: start: 20070828, end: 20071101

REACTIONS (8)
  - AGGRESSION [None]
  - ANTISOCIAL BEHAVIOUR [None]
  - DISINHIBITION [None]
  - DISSOCIATION [None]
  - HOMICIDE [None]
  - MEDICATION ERROR [None]
  - PERSONALITY CHANGE [None]
  - PHYSICAL ASSAULT [None]
